FAERS Safety Report 18702004 (Version 1)
Quarter: 2021Q1

REPORT INFORMATION
  Report Type: Spontaneous
  Country: US (occurrence: US)
  Receive Date: 20210105
  Receipt Date: 20210105
  Transmission Date: 20210419
  Serious: Yes (Hospitalization)
  Sender: FDA-Public Use
  Company Number: None

PATIENT
  Age: 82 Year
  Sex: Male
  Weight: 172 kg

DRUGS (26)
  1. INSULIN REGULAR [Concomitant]
     Active Substance: INSULIN NOS
  2. VERAPAMIL [Concomitant]
     Active Substance: VERAPAMIL HYDROCHLORIDE
  3. APIXABAN [Concomitant]
     Active Substance: APIXABAN
  4. ASPIRIN. [Concomitant]
     Active Substance: ASPIRIN
  5. AZITHROMYCIN ANHYDROUS. [Concomitant]
     Active Substance: AZITHROMYCIN ANHYDROUS
  6. ZINC. [Concomitant]
     Active Substance: ZINC
  7. ENOXAPARIN [Concomitant]
     Active Substance: ENOXAPARIN
  8. VITAMIN C [Concomitant]
     Active Substance: ASCORBIC ACID
  9. BAMLANIVIMAB. [Suspect]
     Active Substance: BAMLANIVIMAB
     Indication: COVID-19
     Route: 042
     Dates: start: 20201231, end: 20201231
  10. ALBUTEROL. [Concomitant]
     Active Substance: ALBUTEROL
  11. FAMOTIDINE. [Concomitant]
     Active Substance: FAMOTIDINE
  12. FLUTICASONE. [Concomitant]
     Active Substance: FLUTICASONE
  13. PREDNISONE. [Concomitant]
     Active Substance: PREDNISONE
  14. SCOPALAMINE PATCH [Concomitant]
  15. TACROLIMUS. [Concomitant]
     Active Substance: TACROLIMUS
  16. CEFEPIME [Concomitant]
     Active Substance: CEFEPIME HYDROCHLORIDE
  17. DEXAMETHASONE. [Concomitant]
     Active Substance: DEXAMETHASONE
  18. ATENOLOL. [Concomitant]
     Active Substance: ATENOLOL
  19. BENZONATATE. [Concomitant]
     Active Substance: BENZONATATE
  20. LOVESTATIN [Concomitant]
     Active Substance: LOVASTATIN
  21. ROPINIROLE. [Concomitant]
     Active Substance: ROPINIROLE
  22. INSULIN ASPART [Concomitant]
     Active Substance: INSULIN ASPART
  23. MELANTONIN [Concomitant]
  24. MAG?AL PLUS [Concomitant]
     Active Substance: ALUMINUM HYDROXIDE\DIMETHICONE\MAGNESIUM HYDROXIDE
  25. MYCOPHENOLATE [Concomitant]
     Active Substance: MYCOPHENOLIC ACID
  26. REMDESIVIR. [Concomitant]
     Active Substance: REMDESIVIR

REACTIONS (1)
  - Oxygen saturation decreased [None]

NARRATIVE: CASE EVENT DATE: 20201231
